FAERS Safety Report 7007599-X (Version None)
Quarter: 2010Q3

REPORT INFORMATION
  Report Type: 
  Country: None (occurrence: None)
  Receive Date: 20100922
  Receipt Date: 20100914
  Transmission Date: 20110219
  Serious: Yes (Other)
  Sender: FDA-Public Use
  Company Number: GB-PURDUE-GBR-2010-0007048

PATIENT
  Age: 65 Year
  Sex: Female
  Weight: 100 kg

DRUGS (15)
  1. BUTRANS 20MG TRANSDERMAL PATCH [Suspect]
     Indication: PAIN
     Dosage: 20 MCG, Q1H
     Route: 062
     Dates: start: 20100601
  2. ASPIRIN [Concomitant]
     Dosage: 75 MG, DAILY
  3. BENDROFLUMETHIAZIDE [Concomitant]
     Dosage: 2.5 MG, DAILY
  4. DOMPERIDONE [Concomitant]
     Dosage: 10 MG, TID
  5. FYBOGEL [Concomitant]
     Dosage: 2 DF, DAILY
  6. GAVISCON                           /00237601/ [Concomitant]
     Dosage: UNK MG, BID
  7. GLICLAZIDE [Concomitant]
     Dosage: 160 MG, BID
  8. HYDROXYCHLOROQUINE                 /00072603/ [Concomitant]
     Dosage: 200 MG, DAILY
  9. LERCANIDIPINE [Concomitant]
     Dosage: 10 MG, DAILY
  10. LEVOTHYROXINE SODIUM [Concomitant]
     Dosage: 125 MCG, DAILY
  11. METFORMIN [Concomitant]
     Dosage: 500 MG, TID
  12. MOVICOL                            /01625101/ [Concomitant]
     Dosage: 5 DF, DAILY
  13. ACETAMINOPHEN [Concomitant]
     Dosage: 1 G, QID
  14. SIMVASTATIN [Concomitant]
     Dosage: 40 MG, DAILY
  15. VALSARTAN [Concomitant]
     Dosage: 160 MG, DAILY

REACTIONS (5)
  - APPLICATION SITE ERYTHEMA [None]
  - APPLICATION SITE HYPERSENSITIVITY [None]
  - APPLICATION SITE PRURITUS [None]
  - APPLICATION SITE REACTION [None]
  - INADEQUATE ANALGESIA [None]
